FAERS Safety Report 6853817-8 (Version None)
Quarter: 2010Q3

REPORT INFORMATION
  Report Type: 
  Country: None (occurrence: None)
  Receive Date: 20100717
  Receipt Date: 20071217
  Transmission Date: 20110219
  Serious: No
  Sender: FDA-Public Use
  Company Number: US-PFIZER INC-2007107067

PATIENT
  Sex: Female
  Weight: 59.1 kg

DRUGS (5)
  1. CHANTIX [Suspect]
     Indication: SMOKING CESSATION THERAPY
     Dates: start: 20071201
  2. SYNTHROID [Concomitant]
  3. CRESTOR [Concomitant]
  4. ATENOLOL [Concomitant]
  5. PRILOSEC [Concomitant]

REACTIONS (3)
  - FLATULENCE [None]
  - NAUSEA [None]
  - URTICARIA [None]
